FAERS Safety Report 5099207-2 (Version None)
Quarter: 2006Q3

REPORT INFORMATION
  Report Type: 
  Country: None (occurrence: None)
  Receive Date: 20060731
  Receipt Date: 20050929
  Transmission Date: 20061208
  Serious: Yes (Hospitalization, Other)
  Sender: FDA-Public Use
  Company Number: 218178

PATIENT
  Age: 67 Year
  Sex: Female

DRUGS (1)
  1. HERCEPTIN [Suspect]
     Indication: BREAST CANCER
     Dosage: 2 MG/KG
     Dates: start: 20050801, end: 20050906

REACTIONS (3)
  - DYSPNOEA [None]
  - FATIGUE [None]
  - HYPOXIA [None]
